FAERS Safety Report 8032473-X (Version None)
Quarter: 2012Q1

REPORT INFORMATION
  Report Type: 
  Country: None (occurrence: None)
  Receive Date: 20120110
  Receipt Date: 20120102
  Transmission Date: 20120608
  Serious: Yes (Other)
  Sender: FDA-Public Use
  Company Number: GB-TEVA-316389ISR

PATIENT
  Age: 28 Year
  Sex: Male

DRUGS (1)
  1. TOPIRAMATE [Suspect]
     Indication: EPILEPSY
     Dosage: 200 MILLIGRAM;
     Route: 048
     Dates: start: 20111118

REACTIONS (2)
  - TOOTH DISCOLOURATION [None]
  - DENTAL CARIES [None]
